FAERS Safety Report 9064804 (Version 1)
Quarter: 2013Q1

REPORT INFORMATION
  Report Type: Spontaneous
  Country: IT (occurrence: IT)
  Receive Date: 20130130
  Receipt Date: 20130130
  Transmission Date: 20140127
  Serious: Yes (Hospitalization)
  Sender: FDA-Public Use
  Company Number: IT-TEVA-382905ISR

PATIENT
  Sex: Female

DRUGS (1)
  1. TRAMADOL [Suspect]

REACTIONS (2)
  - Vomiting [Recovering/Resolving]
  - Gastritis [Recovering/Resolving]
